FAERS Safety Report 18090481 (Version 2)
Quarter: 2020Q4

REPORT INFORMATION
  Report Type: Report from Study
  Country: US (occurrence: US)
  Receive Date: 20200730
  Receipt Date: 20201104
  Transmission Date: 20210113
  Serious: No
  Sender: FDA-Public Use
  Company Number: NVSC2020US212628

PATIENT
  Age: 81 Year
  Sex: Female
  Weight: 70.31 kg

DRUGS (1)
  1. GLEEVEC [Suspect]
     Active Substance: IMATINIB MESYLATE
     Indication: CHRONIC MYELOID LEUKAEMIA
     Dosage: 400 MG, QD
     Route: 048
     Dates: start: 20180630, end: 20200711

REACTIONS (5)
  - Oedema [Recovering/Resolving]
  - Hypersensitivity [Unknown]
  - Pain [Unknown]
  - Vomiting [Recovered/Resolved]
  - Blister [Unknown]

NARRATIVE: CASE EVENT DATE: 20200501
